FAERS Safety Report 15460877 (Version 3)
Quarter: 2018Q4

REPORT INFORMATION
  Report Type: Spontaneous
  Country: US (occurrence: US)
  Receive Date: 20181003
  Receipt Date: 20181030
  Transmission Date: 20190204
  Serious: No
  Sender: FDA-Public Use
  Company Number: US-GILEAD-2018-0366238

PATIENT
  Age: 55 Year
  Sex: Male

DRUGS (8)
  1. ASPIRIN (E.C.) [Concomitant]
     Active Substance: ASPIRIN
  2. LEVETIRACETAM. [Concomitant]
     Active Substance: LEVETIRACETAM
  3. MULTIVITAMIN                       /00097801/ [Concomitant]
     Active Substance: VITAMINS
  4. AMITRIPTYLINE HCL [Concomitant]
     Active Substance: AMITRIPTYLINE
  5. EPCLUSA [Suspect]
     Active Substance: SOFOSBUVIR\VELPATASVIR
     Indication: CHRONIC HEPATITIS C
     Dosage: 1 DF, UNK, 9 DAYS
     Route: 048
     Dates: start: 201809
  6. FINASTERIDE. [Concomitant]
     Active Substance: FINASTERIDE
  7. ATORVASTATIN CALCIUM. [Interacting]
     Active Substance: ATORVASTATIN CALCIUM
     Indication: BLOOD CHOLESTEROL
     Dosage: 80 MG, UNK
     Route: 065
  8. VERAPAMIL HCL [Concomitant]
     Active Substance: VERAPAMIL HYDROCHLORIDE

REACTIONS (3)
  - Headache [Unknown]
  - Fatigue [Not Recovered/Not Resolved]
  - Drug interaction [Unknown]

NARRATIVE: CASE EVENT DATE: 201809
